FAERS Safety Report 25948431 (Version 2)
Quarter: 2025Q4

REPORT INFORMATION
  Report Type: Spontaneous
  Country: US (occurrence: US)
  Receive Date: 20251022
  Receipt Date: 20251202
  Transmission Date: 20260118
  Serious: No
  Sender: SANOFI AVENTIS
  Company Number: US-SA-2025SA236415

PATIENT
  Age: 2 Year
  Sex: Female

DRUGS (1)
  1. DUPIXENT [Suspect]
     Active Substance: DUPILUMAB
     Indication: Eczema
     Dosage: 200 MG, Q4W
     Route: 058
     Dates: start: 202507

REACTIONS (3)
  - Rash pruritic [Not Recovered/Not Resolved]
  - Dermatitis atopic [Unknown]
  - Rash papular [Unknown]

NARRATIVE: CASE EVENT DATE: 20250101
